FAERS Safety Report 8912743 (Version 2)
Quarter: 2012Q4

REPORT INFORMATION
  Report Type: 
  Country: BE (occurrence: BE)
  Receive Date: 20121116
  Receipt Date: 20121126
  Transmission Date: 20130627
  Serious: Yes (Other)
  Sender: FDA-Public Use
  Company Number: BE-ROCHE-1154009

PATIENT
  Age: 46 Year
  Sex: Female
  Weight: 68 kg

DRUGS (13)
  1. TRASTUZUMAB [Suspect]
     Indication: BREAST CANCER METASTATIC
     Route: 065
     Dates: start: 201007, end: 201011
  2. TRASTUZUMAB [Suspect]
     Route: 065
     Dates: start: 201011, end: 201101
  3. TRASTUZUMAB [Suspect]
     Route: 065
     Dates: start: 201102, end: 201105
  4. CAPECITABINE [Suspect]
     Indication: PRODUCT USED FOR UNKNOWN INDICATION
     Route: 065
  5. LAPATINIB [Suspect]
     Indication: PRODUCT USED FOR UNKNOWN INDICATION
     Route: 065
  6. BKM120 [Suspect]
     Indication: PRODUCT USED FOR UNKNOWN INDICATION
     Route: 065
     Dates: start: 201102, end: 201105
  7. VINORELBINE [Suspect]
     Indication: PRODUCT USED FOR UNKNOWN INDICATION
     Route: 065
     Dates: start: 201001, end: 201210
  8. CISPLATINUM [Suspect]
     Indication: PRODUCT USED FOR UNKNOWN INDICATION
     Route: 065
     Dates: start: 201201, end: 201205
  9. FLUOROURACIL [Suspect]
     Indication: PRODUCT USED FOR UNKNOWN INDICATION
     Route: 065
     Dates: start: 200608, end: 200612
  10. CYCLOPHOSPHAMID [Suspect]
     Indication: PRODUCT USED FOR UNKNOWN INDICATION
     Route: 065
     Dates: start: 200608, end: 200612
  11. EPIRUBICIN [Suspect]
     Indication: PRODUCT USED FOR UNKNOWN INDICATION
     Route: 065
     Dates: start: 200608, end: 200612
  12. PACLITAXEL [Suspect]
     Indication: PRODUCT USED FOR UNKNOWN INDICATION
     Route: 065
  13. EVEROLIMUS [Suspect]
     Indication: PRODUCT USED FOR UNKNOWN INDICATION
     Route: 065

REACTIONS (2)
  - Disease progression [Not Recovered/Not Resolved]
  - Toxicity to various agents [Unknown]
